FAERS Safety Report 18040911 (Version 5)
Quarter: 2020Q3

REPORT INFORMATION
  Report Type: Report from Study
  Country: None (occurrence: FR)
  Receive Date: 20200717
  Receipt Date: 20200903
  Transmission Date: 20201103
  Serious: No
  Sender: FDA-Public Use
  Company Number: FR-ABBVIE-20K-056-3464855-00

PATIENT
  Sex: Female

DRUGS (2)
  1. DUODOPA [Suspect]
     Active Substance: CARBIDOPA\LEVODOPA
     Indication: PARKINSON^S DISEASE
     Route: 050
     Dates: start: 202005, end: 20200710
  2. DUODOPA [Suspect]
     Active Substance: CARBIDOPA\LEVODOPA
     Route: 050
     Dates: start: 2020, end: 20200827

REACTIONS (7)
  - Photosensitivity reaction [Recovered/Resolved]
  - Thermal burns of eye [Recovered/Resolved]
  - Antisocial personality disorder [Unknown]
  - Reading disorder [Recovered/Resolved]
  - Eye pain [Recovered/Resolved]
  - Cognitive disorder [Recovered/Resolved]
  - Psychological factor affecting medical condition [Unknown]

NARRATIVE: CASE EVENT DATE: 2020
